FAERS Safety Report 23398806 (Version 1)
Quarter: 2024Q1

REPORT INFORMATION
  Report Type: Report from Study
  Country: US (occurrence: US)
  Receive Date: 20240112
  Receipt Date: 20240112
  Transmission Date: 20240410
  Serious: Yes (Hospitalization)
  Sender: FDA-Public Use
  Company Number: US-BIOGEN-2024BI01244570

PATIENT
  Age: 55 Year
  Sex: Female
  Weight: 109.2 kg

DRUGS (27)
  1. TYSABRI [Suspect]
     Active Substance: NATALIZUMAB
     Indication: Multiple sclerosis
     Dosage: INFUSED OVER 1 HOUR
     Route: 050
     Dates: start: 20131119
  2. TYLENOL [Concomitant]
     Active Substance: ACETAMINOPHEN
     Indication: Product used for unknown indication
     Dosage: TAKE BY MOUTH
     Route: 050
  3. VENTOLIN HFA [Concomitant]
     Active Substance: ALBUTEROL SULFATE
     Indication: Product used for unknown indication
     Dosage: 90 MCG/ ACTUATION INHL
     Route: 050
     Dates: start: 20221007
  4. VITAMIN C [Concomitant]
     Active Substance: ASCORBIC ACID
     Indication: Product used for unknown indication
     Dosage: TAKE 500 MG BY MOUTH DAILY
     Route: 050
  5. LIORESAL [Concomitant]
     Active Substance: BACLOFEN
     Indication: Product used for unknown indication
     Dosage: TAKE 1 TABLET BY MOUTH 3 TIMES A DAY
     Route: 050
     Dates: start: 20210322
  6. MEGA BIOTIN [Concomitant]
     Indication: Product used for unknown indication
     Dosage: TAKE 2 CAPSULES BY MOUTH
     Route: 050
  7. CELEBREX [Concomitant]
     Active Substance: CELECOXIB
     Indication: Product used for unknown indication
     Dosage: 2 TIMES A DAY
     Route: 050
     Dates: start: 20211018
  8. VITAMIN D3 [Concomitant]
     Active Substance: CHOLECALCIFEROL
     Indication: Product used for unknown indication
     Dosage: 5000 UNIT TAKE BY MOUTH DAILY
     Route: 050
  9. TEMOVATE [Concomitant]
     Active Substance: CLOBETASOL PROPIONATE
     Indication: Product used for unknown indication
     Dosage: APPLY TO AFFECTED AREA 2 TIMES A DAY
     Route: 050
     Dates: start: 20231012
  10. ARICEPT [Concomitant]
     Active Substance: DONEPEZIL HYDROCHLORIDE
     Indication: Cognitive disorder
     Dosage: TAKE 1 TABLET BY MOUTH AT BED TIME
     Route: 050
     Dates: start: 20210322
  11. CYMBALTA [Concomitant]
     Active Substance: DULOXETINE HYDROCHLORIDE
     Indication: Product used for unknown indication
     Dosage: TAKE 60 MG BY MOUTH DAILY
     Route: 050
     Dates: start: 20230323
  12. LASIX [Concomitant]
     Active Substance: FUROSEMIDE
     Indication: Product used for unknown indication
     Dosage: ALTERNATE BETWEEN 40 MG AND 80 MG EVERY OTHER DAY
     Route: 050
     Dates: start: 20190110
  13. NEURONTIN [Concomitant]
     Active Substance: GABAPENTIN
     Indication: Product used for unknown indication
     Dosage: TAKE ONE CAPSULE BY MOUTH THREE TIMES DAILY
     Route: 050
     Dates: start: 20231011
  14. GRIFULVIN V [Concomitant]
     Active Substance: GRISEOFULVIN
     Indication: Product used for unknown indication
     Dosage: TAKE 02 TABLETS BY MOUTH DAILY
     Route: 050
     Dates: start: 20230519
  15. MACRODANTIN [Concomitant]
     Active Substance: NITROFURANTOIN
     Indication: Product used for unknown indication
     Dosage: TAKE 100 MG BY MOUTH DAILY
     Route: 050
     Dates: start: 20190110
  16. MYCOSTATIN [Concomitant]
     Active Substance: NYSTATIN
     Indication: Product used for unknown indication
     Dosage: 100000 UNIT/GRAM, APPLY TOPICALLY 3 TIMES A DAY
     Route: 050
     Dates: start: 20230131
  17. MYCOSTATIN [Concomitant]
     Active Substance: NYSTATIN
     Dosage: 100,000 UNIT/GRAM TOPICAL POWDER
     Route: 050
     Dates: start: 20210916
  18. PRILOSEC [Concomitant]
     Active Substance: OMEPRAZOLE MAGNESIUM
     Indication: Product used for unknown indication
     Dosage: TAKE 20 MG BY MOUTH DAILY
     Route: 050
     Dates: start: 20211015
  19. CRESTOR [Concomitant]
     Active Substance: ROSUVASTATIN CALCIUM
     Indication: Product used for unknown indication
     Dosage: TAKE 5 MG BY MOUTH AT BEDTIME
     Route: 050
     Dates: start: 20211009
  20. DESYREL [Concomitant]
     Active Substance: TRAZODONE HYDROCHLORIDE
     Indication: Product used for unknown indication
     Dosage: TAKE 5 MG BY MOUTH AT BEDTIME
     Route: 050
     Dates: start: 20171213
  21. KENALOG [Concomitant]
     Active Substance: TRIAMCINOLONE ACETONIDE
     Indication: Product used for unknown indication
     Dosage: APPLY TO THE AFFECTED AREA 2 TIMES A DAY
     Route: 050
     Dates: start: 20230131
  22. DYAZIDE [Concomitant]
     Active Substance: HYDROCHLOROTHIAZIDE\TRIAMTERENE
     Indication: Product used for unknown indication
     Dosage: 37.5 TO 25 MG TAKE 1 CAPSULE BY MOUTH EVERY MORNING
     Route: 050
     Dates: start: 20211009
  23. AMBIEN [Concomitant]
     Active Substance: ZOLPIDEM TARTRATE
     Indication: Product used for unknown indication
     Dosage: TAKE 5 MG BY MOUTH AT BEDTIME
     Route: 050
  24. BACLOFEN [Concomitant]
     Active Substance: BACLOFEN
     Indication: Muscle spasms
     Dosage: FOR IT PUMP REFILL DISPENSE IN 20 ML TOTAL VOLUME
     Route: 050
     Dates: start: 20201005
  25. COENZYME Q10 [Concomitant]
     Active Substance: DIETARY SUPPLEMENT\UBIDECARENONE
     Indication: Product used for unknown indication
     Route: 050
  26. MAGNESIUM GLYCINATE [Concomitant]
     Active Substance: MAGNESIUM GLYCINATE
     Indication: Product used for unknown indication
     Dosage: 400 MG IN THE EVENING
     Route: 050
  27. MAGNESIUM GLYCINATE [Concomitant]
     Active Substance: MAGNESIUM GLYCINATE
     Dosage: 400 MG IN THE EVENING
     Route: 050

REACTIONS (1)
  - Urosepsis [Unknown]

NARRATIVE: CASE EVENT DATE: 20231101
